FAERS Safety Report 13183755 (Version 1)
Quarter: 2017Q1

REPORT INFORMATION
  Report Type: Spontaneous
  Country: US (occurrence: US)
  Receive Date: 20170203
  Receipt Date: 20170203
  Transmission Date: 20170428
  Serious: Yes (Other)
  Sender: FDA-Public Use
  Company Number: US-009507513-1701USA013547

PATIENT
  Sex: Female

DRUGS (1)
  1. DULERA [Suspect]
     Active Substance: FORMOTEROL FUMARATE DIHYDRATE\MOMETASONE FUROATE
     Dosage: UNK, ROUTE: INHALATION
     Route: 055

REACTIONS (4)
  - Pancreaticoduodenectomy [Recovering/Resolving]
  - Malaise [Unknown]
  - Product quality issue [Unknown]
  - Nasopharyngitis [Not Recovered/Not Resolved]
